FAERS Safety Report 4513496-1 (Version None)
Quarter: 2004Q4

REPORT INFORMATION
  Report Type: 
  Country: None (occurrence: None)
  Receive Date: 20041130
  Receipt Date: 20041118
  Transmission Date: 20050328
  Serious: Yes (Hospitalization)
  Sender: FDA-Public Use
  Company Number: US-JNJFOC-20041104000

PATIENT
  Sex: Female
  Weight: 98.43 kg

DRUGS (4)
  1. TOPAMAX [Suspect]
     Route: 049
     Dates: end: 20041113
  2. TOPAMAX [Suspect]
     Route: 049
     Dates: end: 20041113
  3. TOPAMAX [Suspect]
     Indication: MIGRAINE
     Dosage: DOSAGE WAS TITRATED UP TO 75 MG
     Route: 049
     Dates: end: 20041113
  4. MULTIVITAMIN [Concomitant]

REACTIONS (8)
  - DEPRESSED LEVEL OF CONSCIOUSNESS [None]
  - DIZZINESS [None]
  - HYPOTENSION [None]
  - INCOHERENT [None]
  - MOVEMENT DISORDER [None]
  - PARAESTHESIA [None]
  - STARING [None]
  - UNRESPONSIVE TO VERBAL STIMULI [None]
